FAERS Safety Report 25989705 (Version 1)
Quarter: 2025Q4

REPORT INFORMATION
  Report Type: Report from Study
  Country: US (occurrence: US)
  Receive Date: 20251103
  Receipt Date: 20251103
  Transmission Date: 20260117
  Serious: Yes (Other)
  Sender: ABBVIE
  Company Number: US-ABBVIE-6525446

PATIENT
  Age: 72 Year
  Sex: Female

DRUGS (1)
  1. VIBERZI [Suspect]
     Active Substance: ELUXADOLINE
     Indication: Product used for unknown indication
     Route: 048
     Dates: start: 20241003

REACTIONS (2)
  - Wound dehiscence [Unknown]
  - Fall [Unknown]

NARRATIVE: CASE EVENT DATE: 20241003
